FAERS Safety Report 7953042-3 (Version None)
Quarter: 2011Q4

REPORT INFORMATION
  Report Type: 
  Country: None (occurrence: None)
  Receive Date: 20111201
  Receipt Date: 20111122
  Transmission Date: 20120403
  Serious: Yes (Other)
  Sender: FDA-Public Use
  Company Number: CN-ASTRAZENECA-2011SE71137

PATIENT
  Sex: Female

DRUGS (3)
  1. SUFENTANIL CITRATE [Suspect]
     Indication: ANAESTHESIA
     Dosage: 0.1 UG/KG
  2. PROPOFOL [Suspect]
     Dosage: 75-150 UG/KG
     Route: 042
  3. PROPOFOL [Suspect]
     Indication: ANAESTHESIA
     Dosage: 2 MG/KG
     Route: 042

REACTIONS (6)
  - DIZZINESS [None]
  - RESPIRATORY DEPRESSION [None]
  - VOMITING [None]
  - NAUSEA [None]
  - INJECTION SITE PAIN [None]
  - HEADACHE [None]
